FAERS Safety Report 12183799 (Version 1)
Quarter: 2016Q1

REPORT INFORMATION
  Report Type: Spontaneous
  Country: US (occurrence: None)
  Receive Date: 20160315
  Receipt Date: 20160315
  Transmission Date: 20160526
  Serious: Yes (Other)
  Sender: FDA-Public Use
  Company Number: None

PATIENT
  Age: 27 Year
  Sex: Male
  Weight: 74.84 kg

DRUGS (1)
  1. BREXPIPRAZOLE 2 OTSUKA [Suspect]
     Active Substance: BREXPIPRAZOLE
     Indication: DEPRESSION
     Dosage: 30 QD ORAL?
     Route: 048
     Dates: start: 20151201, end: 20160301

REACTIONS (2)
  - Diabetes mellitus [None]
  - Weight increased [None]

NARRATIVE: CASE EVENT DATE: 20160201
